FAERS Safety Report 5959250-5 (Version None)
Quarter: 2008Q4

REPORT INFORMATION
  Report Type: 
  Country: None (occurrence: None)
  Receive Date: 20081120
  Receipt Date: 20081111
  Transmission Date: 20090506
  Serious: Yes (Other)
  Sender: FDA-Public Use
  Company Number: US-ALLERGAN-0814257US

PATIENT
  Sex: Female

DRUGS (2)
  1. OPTIVE [Suspect]
     Indication: DRY EYE
     Dosage: 1 GTT, PRN
     Route: 047
     Dates: start: 20081106, end: 20081108
  2. PAXIL [Concomitant]
     Dosage: UNK, QD
     Route: 048

REACTIONS (4)
  - CHILLS [None]
  - EYE IRRITATION [None]
  - PYREXIA [None]
  - SWELLING FACE [None]
